FAERS Safety Report 4718614-8 (Version None)
Quarter: 2005Q3

REPORT INFORMATION
  Report Type: 
  Country: None (occurrence: None)
  Receive Date: 20050720
  Receipt Date: 20030901
  Transmission Date: 20060218
  Serious: Yes (Life-Threatening, Hospitalization)
  Sender: FDA-Public Use
  Company Number: GB-GLAXOSMITHKLINE-B0308139A

PATIENT
  Age: 59 Year
  Sex: Female
  Weight: 80 kg

DRUGS (5)
  1. CIMETIDINE [Suspect]
     Dosage: 400MG TWICE PER DAY
     Route: 048
     Dates: start: 19990814
  2. METFORMIN [Suspect]
     Dosage: 500MG FOUR TIMES PER DAY
     Route: 048
     Dates: start: 19940101
  3. ORLISTAT [Suspect]
     Indication: OBESITY
     Dosage: 120MG THREE TIMES PER DAY
     Route: 065
     Dates: start: 19990622, end: 19990914
  4. AMILORIDE HCL AND HYDROCHLOROTHIAZIDE [Concomitant]
     Dosage: 2TAB PER DAY
     Route: 048
     Dates: start: 19940101
  5. ASPIRIN [Concomitant]
     Dosage: 75MG PER DAY
     Route: 048
     Dates: start: 19940101

REACTIONS (13)
  - ABDOMINAL PAIN [None]
  - ASTHENIA [None]
  - CIRCULATORY COLLAPSE [None]
  - DEPRESSED LEVEL OF CONSCIOUSNESS [None]
  - DIARRHOEA [None]
  - DIZZINESS [None]
  - DRUG INTERACTION [None]
  - DRUG LEVEL INCREASED [None]
  - DYSARTHRIA [None]
  - LACTIC ACIDOSIS [None]
  - RENAL FAILURE ACUTE [None]
  - VISION BLURRED [None]
  - VOMITING [None]
